FAERS Safety Report 12196809 (Version 1)
Quarter: 2016Q1

REPORT INFORMATION
  Report Type: Spontaneous
  Country: GB (occurrence: GB)
  Receive Date: 20160321
  Receipt Date: 20160321
  Transmission Date: 20160526
  Serious: Yes (Other)
  Sender: FDA-Public Use
  Company Number: PHHY2016GB034711

PATIENT
  Sex: Male

DRUGS (1)
  1. PARACETAMOL [Suspect]
     Active Substance: ACETAMINOPHEN
     Indication: SPINAL DISORDER
     Dosage: 500 MG, UNK
     Route: 065

REACTIONS (3)
  - Dyspnoea [Unknown]
  - Paralysis [Unknown]
  - Throat tightness [Unknown]
